FAERS Safety Report 16661271 (Version 1)
Quarter: 2019Q3

REPORT INFORMATION
  Report Type: Spontaneous
  Country: US (occurrence: US)
  Receive Date: 20190619
  Receipt Date: 20190619
  Transmission Date: 20191004
  Serious: Yes (Death)
  Sender: FDA-Public Use
  Company Number: None

PATIENT
  Age: 53 Year
  Sex: Female

DRUGS (6)
  1. BACTRIM [Concomitant]
     Active Substance: SULFAMETHOXAZOLE\TRIMETHOPRIM
  2. DECADRON [Concomitant]
     Active Substance: DEXAMETHASONE
  3. GRANISETRON [Concomitant]
     Active Substance: GRANISETRON
  4. ETOPOSIDE, 50 MG [Suspect]
     Active Substance: ETOPOSIDE
     Indication: BRAIN NEOPLASM MALIGNANT
     Dosage: ?          OTHER FREQUENCY:14 DAYS ON AND 7 D;?
     Route: 048
     Dates: start: 20190330
  5. MOBIC [Concomitant]
     Active Substance: MELOXICAM
  6. TEMZOLOMIDE [Concomitant]

REACTIONS (1)
  - Death [None]

NARRATIVE: CASE EVENT DATE: 20190618
